FAERS Safety Report 5474261-4 (Version None)
Quarter: 2007Q4

REPORT INFORMATION
  Report Type: 
  Country: None (occurrence: None)
  Receive Date: 20071002
  Receipt Date: 20071001
  Transmission Date: 20080405
  Serious: Yes (Hospitalization)
  Sender: FDA-Public Use
  Company Number: JP-BAYER-200715449GDS

PATIENT
  Age: 32 Year
  Sex: Female

DRUGS (1)
  1. BUFFERIN [Suspect]
     Indication: THROMBOLYSIS
     Route: 065

REACTIONS (3)
  - ABORTION OF ECTOPIC PREGNANCY [None]
  - ECTOPIC PREGNANCY [None]
  - TUBAL LIGATION [None]
